FAERS Safety Report 5161269-1 (Version None)
Quarter: 2006Q4

REPORT INFORMATION
  Report Type: 
  Country: None (occurrence: None)
  Receive Date: 20061130
  Receipt Date: 20060926
  Transmission Date: 20070319
  Serious: No
  Sender: FDA-Public Use
  Company Number: US-BRISTOL-MYERS SQUIBB COMPANY-13525001

PATIENT
  Age: 72 Year
  Sex: Female
  Weight: 36 kg

DRUGS (3)
  1. ERBITUX [Suspect]
     Indication: LARYNGEAL CANCER
     Dates: start: 20060705, end: 20060912
  2. KYTRIL [Concomitant]
     Indication: PREMEDICATION
     Route: 042
  3. BENADRYL [Concomitant]
     Indication: PREMEDICATION
     Route: 042

REACTIONS (1)
  - SKIN EXFOLIATION [None]
